FAERS Safety Report 8290152-8 (Version None)
Quarter: 2012Q2

REPORT INFORMATION
  Report Type: 
  Country: None (occurrence: None)
  Receive Date: 20120412
  Receipt Date: 20120412
  Transmission Date: 20120825
  Serious: Yes (Hospitalization)
  Sender: FDA-Public Use
  Company Number: None

PATIENT
  Age: 66 Year
  Sex: Male
  Weight: 103.7 kg

DRUGS (2)
  1. FLUPHENAZINE [Suspect]
     Indication: NEUROLEPTIC MALIGNANT SYNDROME
     Dosage: EAR
     Dates: start: 20111028, end: 20111226
  2. FLUPHENAZINE [Suspect]
     Indication: HYPERTENSION
     Dosage: EAR
     Dates: start: 20111028, end: 20111226

REACTIONS (1)
  - NEUROLEPTIC MALIGNANT SYNDROME [None]
